FAERS Safety Report 9143322 (Version 1)
Quarter: 2013Q1

REPORT INFORMATION
  Report Type: Spontaneous
  Country: US (occurrence: US)
  Receive Date: 20130306
  Receipt Date: 20130306
  Transmission Date: 20140127
  Serious: No
  Sender: FDA-Public Use
  Company Number: US-ENDO PHARMACEUTICALS INC.-OPER20120675

PATIENT
  Sex: Female

DRUGS (3)
  1. OPANA ER [Suspect]
     Indication: ARTHRALGIA
     Route: 048
  2. OPANA ER [Suspect]
     Route: 048
  3. OPANA ER [Suspect]
     Route: 048

REACTIONS (3)
  - Discomfort [Unknown]
  - Dizziness [Unknown]
  - Somnolence [Unknown]
